FAERS Safety Report 20305046 (Version 1)
Quarter: 2022Q1

REPORT INFORMATION
  Report Type: Spontaneous
  Country: JP (occurrence: JP)
  Receive Date: 20220106
  Receipt Date: 20220106
  Transmission Date: 20220423
  Serious: Yes (Other)
  Sender: FDA-Public Use
  Company Number: JP-LUPIN PHARMACEUTICALS INC.-2021-26336

PATIENT
  Age: 69 Year
  Sex: Male

DRUGS (24)
  1. AMLODIPINE [Suspect]
     Active Substance: AMLODIPINE BESYLATE
     Indication: Thrombotic microangiopathy
     Dosage: 2.5 MILLIGRAM
     Route: 065
     Dates: start: 202005, end: 202005
  2. AMLODIPINE [Suspect]
     Active Substance: AMLODIPINE BESYLATE
     Dosage: 5 MILLIGRAM
     Route: 065
     Dates: start: 202005
  3. PREDNISOLONE [Suspect]
     Active Substance: PREDNISOLONE
     Indication: Thrombotic microangiopathy
     Dosage: 30 MILLIGRAM
     Route: 042
     Dates: start: 202005, end: 202005
  4. PREDNISOLONE [Suspect]
     Active Substance: PREDNISOLONE
     Dosage: 20 MILLIGRAM
     Route: 065
     Dates: start: 202005, end: 202005
  5. PREDNISOLONE [Suspect]
     Active Substance: PREDNISOLONE
     Dosage: 10 MILLIGRAM
     Route: 065
     Dates: start: 202005, end: 202006
  6. PREDNISOLONE [Suspect]
     Active Substance: PREDNISOLONE
     Dosage: 30 MILLIGRAM
     Route: 065
     Dates: start: 202006, end: 202006
  7. PREDNISOLONE [Suspect]
     Active Substance: PREDNISOLONE
     Dosage: 20 MILLIGRAM
     Route: 065
     Dates: start: 202006, end: 202007
  8. PREDNISOLONE [Suspect]
     Active Substance: PREDNISOLONE
     Dosage: 10 MILLIGRAM
     Route: 065
     Dates: start: 202007
  9. PREDNISOLONE [Suspect]
     Active Substance: PREDNISOLONE
     Dosage: 30 MILLIGRAM
     Route: 042
     Dates: start: 2020
  10. AZOSEMIDE [Suspect]
     Active Substance: AZOSEMIDE
     Indication: Thrombotic microangiopathy
     Dosage: 30 MILLIGRAM
     Route: 065
     Dates: start: 202005, end: 202008
  11. FUROSEMIDE [Suspect]
     Active Substance: FUROSEMIDE
     Indication: Thrombotic microangiopathy
     Dosage: 60 MILLIGRAM
     Route: 065
     Dates: start: 202008, end: 202008
  12. FUROSEMIDE [Suspect]
     Active Substance: FUROSEMIDE
     Dosage: 80 MILLIGRAM
     Route: 065
     Dates: start: 202008, end: 202008
  13. FUROSEMIDE [Suspect]
     Active Substance: FUROSEMIDE
     Dosage: 60 MILLIGRAM
     Route: 065
     Dates: start: 202009, end: 202009
  14. FUROSEMIDE [Suspect]
     Active Substance: FUROSEMIDE
     Dosage: 40 MILLIGRAM
     Route: 065
     Dates: start: 202009, end: 202009
  15. FUROSEMIDE [Suspect]
     Active Substance: FUROSEMIDE
     Dosage: 20 MILLIGRAM
     Route: 065
     Dates: start: 202009
  16. NIVOLUMAB [Concomitant]
     Active Substance: NIVOLUMAB
     Indication: Lung adenocarcinoma stage III
     Dosage: 23 CYCLES
     Route: 065
  17. DOCETAXEL [Concomitant]
     Active Substance: DOCETAXEL
     Indication: Non-small cell lung cancer metastatic
     Dosage: 6 CYCLES
     Route: 065
  18. DOCETAXEL [Concomitant]
     Active Substance: DOCETAXEL
     Indication: Metastases to testicle
  19. RAMUCIRUMAB [Concomitant]
     Active Substance: RAMUCIRUMAB
     Indication: Non-small cell lung cancer metastatic
     Dosage: 6 CYCLES
     Route: 065
  20. RAMUCIRUMAB [Concomitant]
     Active Substance: RAMUCIRUMAB
     Indication: Metastases to testicle
  21. VINORELBINE [Concomitant]
     Active Substance: VINORELBINE TARTRATE
     Indication: Lung adenocarcinoma stage III
     Dosage: 25 MILLIGRAM/SQ. METER (EVERY 2 WEEKS)
     Route: 065
  22. GEMCITABINE [Concomitant]
     Active Substance: GEMCITABINE
     Indication: Lung adenocarcinoma stage III
     Dosage: 750 MILLIGRAM/SQ. METER (1000 MG/BODY EVERY 2 WEEKS)
     Route: 065
  23. CARBOPLATIN [Concomitant]
     Active Substance: CARBOPLATIN
     Indication: Lung adenocarcinoma stage III
     Dosage: 5 CYCLES
     Route: 065
  24. PEMETREXED [Concomitant]
     Active Substance: PEMETREXED
     Indication: Lung adenocarcinoma stage III
     Dosage: 5 CYCLES
     Route: 065

REACTIONS (2)
  - Drug ineffective for unapproved indication [Unknown]
  - Off label use [Unknown]

NARRATIVE: CASE EVENT DATE: 20190801
